FAERS Safety Report 26179547 (Version 1)
Quarter: 2025Q4

REPORT INFORMATION
  Report Type: Spontaneous
  Country: EU (occurrence: EU)
  Receive Date: 20251219
  Receipt Date: 20251219
  Transmission Date: 20260118
  Serious: Yes (Hospitalization, Congenital Anomaly, Other)
  Sender: DR REDDYS
  Company Number: None

PATIENT
  Age: 1 Day
  Sex: Female
  Weight: 1.35 kg

DRUGS (18)
  1. SILDENAFIL [Suspect]
     Active Substance: SILDENAFIL
     Indication: Exposure during pregnancy
     Dosage: 20 MG, TID
     Route: 064
  2. SILDENAFIL [Suspect]
     Active Substance: SILDENAFIL
     Indication: Pulmonary arterial hypertension
     Dosage: 20 MG, TID
     Route: 064
     Dates: start: 20150105, end: 20150323
  3. SILDENAFIL [Suspect]
     Active Substance: SILDENAFIL
     Dosage: 20 MG, TID
     Route: 064
     Dates: start: 20150416, end: 20151010
  4. APIXABAN [Suspect]
     Active Substance: APIXABAN
     Indication: Exposure during pregnancy
     Route: 064
  5. TREPROSTINIL [Suspect]
     Active Substance: TREPROSTINIL
     Indication: Exposure during pregnancy
     Route: 064
  6. AZATHIOPRINE [Suspect]
     Active Substance: AZATHIOPRINE
     Indication: Exposure during pregnancy
     Dosage: 50 UNK, QD 1 IN 1 DAY
     Route: 064
     Dates: start: 20150416, end: 20151010
  7. HYDROXYCHLOROQUINE SULFATE [Suspect]
     Active Substance: HYDROXYCHLOROQUINE SULFATE
     Indication: Exposure during pregnancy
     Route: 064
     Dates: start: 20150727, end: 20150907
  8. HYDROXYCHLOROQUINE SULFATE [Suspect]
     Active Substance: HYDROXYCHLOROQUINE SULFATE
     Indication: Systemic lupus erythematosus
     Dosage: 200 [MG/D ]
     Route: 064
     Dates: start: 20150428, end: 20151010
  9. OPSUMIT [Suspect]
     Active Substance: MACITENTAN
     Indication: Exposure during pregnancy
     Dosage: DAILY DOSE: 10 MG MILLIGRAM(S) EVERY DAY
     Route: 064
     Dates: start: 20141124, end: 20150323
  10. OPSUMIT [Suspect]
     Active Substance: MACITENTAN
     Indication: Pulmonary arterial hypertension
  11. PREDNISOLONE [Suspect]
     Active Substance: PREDNISOLONE
     Indication: Exposure during pregnancy
     Dosage: UNK
     Route: 064
     Dates: start: 20150727, end: 20150907
  12. PREDNISOLONE [Suspect]
     Active Substance: PREDNISOLONE
     Indication: Systemic lupus erythematosus
     Dosage: 5MG, EVERY DAY
     Route: 064
     Dates: start: 20150416, end: 20151010
  13. TINZAPARIN [Suspect]
     Active Substance: TINZAPARIN
     Indication: Pulmonary arterial hypertension
     Dosage: 20000 [IE/D ]
     Route: 064
     Dates: start: 20150416, end: 20151010
  14. TINZAPARIN [Suspect]
     Active Substance: TINZAPARIN
     Dosage: 20000 [IE/D ]
     Route: 064
     Dates: start: 20150408, end: 201510
  15. VENTAVIS [Suspect]
     Active Substance: ILOPROST
     Indication: Exposure during pregnancy
     Dosage: UNK
     Route: 064
     Dates: end: 201505
  16. Femibion (Nahrungserganzungsmittel) [Concomitant]
     Indication: Prophylaxis of neural tube defect
     Route: 064
     Dates: start: 20150330, end: 20150428
  17. BETAMETHASONE [Concomitant]
     Active Substance: BETAMETHASONE
     Indication: Maternal therapy to enhance foetal lung maturity
     Route: 064
     Dates: start: 20150916, end: 20150917
  18. ATOSIBAN [Concomitant]
     Active Substance: ATOSIBAN
     Indication: Tocolysis
     Route: 064
     Dates: start: 20151010, end: 20151010

REACTIONS (15)
  - Premature baby [Unknown]
  - Brachydactyly [Not Recovered/Not Resolved]
  - Bradycardia [Recovered/Resolved]
  - Osteochondrodysplasia [Unknown]
  - Cyanosis [Recovered/Resolved]
  - Hypotonia [Recovered/Resolved]
  - Hypotonia [Recovered/Resolved]
  - Multiple epiphyseal dysplasia [Not Recovered/Not Resolved]
  - Neonatal respiratory distress syndrome [Recovered/Resolved]
  - Posture abnormal [Unknown]
  - Congenital musculoskeletal disorder [Unknown]
  - Congenital musculoskeletal disorder [Unknown]
  - Foetal growth restriction [Unknown]
  - Foetal exposure timing unspecified [Unknown]
  - Skeletal dysplasia [Not Recovered/Not Resolved]

NARRATIVE: CASE EVENT DATE: 20151010
